FAERS Safety Report 9085571 (Version 1)
Quarter: 2013Q1

REPORT INFORMATION
  Report Type: Report from Study
  Country: US (occurrence: US)
  Receive Date: 20130130
  Receipt Date: 20130130
  Transmission Date: 20140127
  Serious: No
  Sender: FDA-Public Use
  Company Number: US-ABBOTT-12P-163-0978061-00

PATIENT
  Sex: Female
  Weight: 64.01 kg

DRUGS (4)
  1. HUMIRA [Suspect]
     Indication: RHEUMATOID ARTHRITIS
     Dates: start: 200508
  2. YAZ [Concomitant]
     Indication: PRODUCT USED FOR UNKNOWN INDICATION
  3. FLURVIPROSEN [Concomitant]
     Indication: PRODUCT USED FOR UNKNOWN INDICATION
  4. B POLLEN [Concomitant]
     Indication: PRODUCT USED FOR UNKNOWN INDICATION

REACTIONS (2)
  - Fatigue [Not Recovered/Not Resolved]
  - Fatigue [Not Recovered/Not Resolved]
